FAERS Safety Report 9345497 (Version 1)
Quarter: 2013Q2

REPORT INFORMATION
  Report Type: Spontaneous
  Country: FR (occurrence: FR)
  Receive Date: 20130613
  Receipt Date: 20130613
  Transmission Date: 20140414
  Serious: Yes (Hospitalization)
  Sender: FDA-Public Use
  Company Number: FR-JNJFOC-20130522958

PATIENT
  Age: 89 Year
  Sex: Male

DRUGS (7)
  1. ZYTIGA [Suspect]
     Indication: PROSTATE CANCER METASTATIC
     Route: 048
     Dates: start: 201304
  2. FUROSEMIDE [Suspect]
     Indication: HYPERTENSION
     Route: 048
     Dates: end: 20130516
  3. LODOZ [Suspect]
     Indication: HYPERTENSION
     Route: 048
     Dates: end: 20130516
  4. ALTEISDUO [Suspect]
     Indication: HYPERTENSION
     Dosage: 20MG/12.5MG
     Route: 048
     Dates: end: 20130516
  5. SOLUPRED [Suspect]
     Indication: PROSTATE CANCER METASTATIC
     Dosage: 20MG AT 0.5DOSE
     Route: 048
     Dates: start: 201304
  6. CRESTOR [Concomitant]
     Indication: PRODUCT USED FOR UNKNOWN INDICATION
     Route: 065
  7. XGEVA [Concomitant]
     Indication: PRODUCT USED FOR UNKNOWN INDICATION
     Route: 065

REACTIONS (3)
  - Hypokalaemia [Recovered/Resolved]
  - Balance disorder [Unknown]
  - Fall [Unknown]
